FAERS Safety Report 8484472-1 (Version None)
Quarter: 2012Q3

REPORT INFORMATION
  Report Type: 
  Country: None (occurrence: None)
  Receive Date: 20120703
  Receipt Date: 20120628
  Transmission Date: 20120928
  Serious: Yes (Other)
  Sender: FDA-Public Use
  Company Number: PHHY2012ES051098

PATIENT
  Age: 29 Year
  Sex: Male

DRUGS (1)
  1. GILENYA [Suspect]
     Indication: MULTIPLE SCLEROSIS
     Dosage: UNK UKN, OT
     Route: 048
     Dates: start: 20120606, end: 20120610

REACTIONS (11)
  - CONFUSIONAL STATE [None]
  - MULTIPLE SCLEROSIS RELAPSE [None]
  - ELECTROENCEPHALOGRAM ABNORMAL [None]
  - DYSARTHRIA [None]
  - NUCLEAR MAGNETIC RESONANCE IMAGING ABNORMAL [None]
  - PERSONALITY CHANGE [None]
  - COMPUTERISED TOMOGRAM ABNORMAL [None]
  - HEMIPARESIS [None]
  - APHASIA [None]
  - DEMENTIA [None]
  - COGNITIVE DISORDER [None]
